FAERS Safety Report 6407762-2 (Version None)
Quarter: 2009Q4

REPORT INFORMATION
  Report Type: 
  Country: None (occurrence: None)
  Receive Date: 20091020
  Receipt Date: 20091014
  Transmission Date: 20100525
  Serious: Yes (Hospitalization)
  Sender: FDA-Public Use
  Company Number: GB-ABBOTT-09P-167-0603073-00

PATIENT
  Age: 25 Year
  Sex: Male

DRUGS (2)
  1. SEVOFLURANE [Suspect]
     Indication: DRUG USE FOR UNKNOWN INDICATION
     Dates: start: 20091010
  2. PROPAFOL [Concomitant]
     Indication: DRUG USE FOR UNKNOWN INDICATION
     Dates: start: 20091010

REACTIONS (1)
  - UNWANTED AWARENESS DURING ANAESTHESIA [None]
